FAERS Safety Report 10097943 (Version 2)
Quarter: 2014Q2

REPORT INFORMATION
  Report Type: Spontaneous
  Country: JP (occurrence: JP)
  Receive Date: 20140423
  Receipt Date: 20140625
  Transmission Date: 20141212
  Serious: Yes (Death, Other)
  Sender: FDA-Public Use
  Company Number: JP-PFIZER INC-2014111165

PATIENT
  Age: 47 Year
  Sex: Female
  Weight: 48 kg

DRUGS (27)
  1. CAMPTO [Suspect]
     Indication: PANCREATIC CARCINOMA
     Dosage: 180 MG, 1X/DAY
     Route: 041
     Dates: start: 20140131, end: 20140131
  2. ELPLAT [Suspect]
     Indication: PANCREATIC CARCINOMA
     Dosage: 120 MG, 1X/DAY
     Route: 041
     Dates: start: 20140131, end: 20140131
  3. 5-FU [Suspect]
     Indication: PANCREATIC CARCINOMA
     Dosage: 500 MG, 1X/DAY
     Route: 040
     Dates: start: 20140131, end: 20140131
  4. 5-FU [Suspect]
     Dosage: 3500 MG, ALTERNATE DAY
     Route: 041
     Dates: start: 20140131, end: 20140131
  5. CALCIUM LEVOFOLINATE [Concomitant]
     Indication: PANCREATIC CARCINOMA
     Dosage: 191.6 MG/M2, UNK
     Dates: start: 20140131, end: 20140131
  6. ALOXI [Concomitant]
     Dosage: UNK
     Dates: start: 20140131, end: 20140131
  7. DECADRON [Concomitant]
     Dosage: UNK
     Dates: start: 20140131, end: 20140202
  8. LAXOBERON [Concomitant]
     Dosage: UNK
     Dates: start: 20140117
  9. CELECOX [Concomitant]
     Dosage: UNK
     Dates: start: 20140124, end: 20140205
  10. MAGLAX [Concomitant]
     Dosage: UNK
     Dates: start: 20140124, end: 20140205
  11. ZYPREXA [Concomitant]
     Dosage: UNK
     Dates: start: 20140124, end: 20140205
  12. RHYTHMY [Concomitant]
     Dosage: UNK
     Dates: start: 20140124, end: 20140205
  13. CALONAL [Concomitant]
     Dosage: UNK
     Dates: start: 20140124
  14. NOVAMIN [Concomitant]
     Dosage: UNK
     Dates: start: 20140124
  15. OXYCONTIN [Concomitant]
     Dosage: UNK
     Dates: start: 20140125, end: 20140205
  16. LASIX [Concomitant]
     Dosage: UNK
     Dates: start: 20140128, end: 20140205
  17. ALDACTONE-A [Concomitant]
     Dosage: UNK
     Dates: start: 20140128, end: 20140205
  18. PURSENNID [Concomitant]
     Dosage: UNK
     Dates: start: 20140128, end: 20140205
  19. PRIMPERAN [Concomitant]
     Dosage: UNK
     Dates: start: 20140130, end: 20140204
  20. SILECE [Concomitant]
     Dosage: UNK
     Dates: start: 20140125, end: 20140205
  21. LASIX [Concomitant]
     Dosage: UNK
     Dates: start: 20140129, end: 20140201
  22. CEFMETAZON [Concomitant]
     Dosage: UNK
     Dates: start: 20140205, end: 20140205
  23. OXIFAST [Concomitant]
     Dosage: UNK
     Dates: start: 20140203, end: 20140205
  24. ALBUMINATE [Concomitant]
     Dosage: UNK
     Dates: start: 20140205, end: 20140205
  25. INOVAN [Concomitant]
     Dosage: UNK
     Dates: start: 20140205, end: 20140205
  26. SOLU-MEDROL [Concomitant]
     Dosage: UNK
     Dates: start: 20140205, end: 20140205
  27. PLASMA PROTEIN FRACTION (HUMAN) [Concomitant]
     Dosage: UNK
     Dates: start: 20140205, end: 20140205

REACTIONS (8)
  - Multi-organ failure [Fatal]
  - Shock [Fatal]
  - Disease progression [Fatal]
  - Pancreatic carcinoma [Fatal]
  - Acute respiratory failure [Fatal]
  - Intestinal obstruction [Fatal]
  - White blood cell count decreased [Not Recovered/Not Resolved]
  - Platelet count decreased [Not Recovered/Not Resolved]
